FAERS Safety Report 10029884 (Version 1)
Quarter: 2014Q1

REPORT INFORMATION
  Report Type: Spontaneous
  Country: US (occurrence: None)
  Receive Date: 20140306
  Receipt Date: 20140306
  Transmission Date: 20141002
  Serious: Yes (Hospitalization, Other)
  Sender: FDA-Public Use
  Company Number: 163-21880-13011264

PATIENT
  Age: 69 Year
  Sex: Female
  Weight: 54.16 kg

DRUGS (12)
  1. REVLIMID [Suspect]
     Indication: PLASMA CELL MYELOMA
     Dosage: 5 MG, 14 IN 21 D, PO
     Route: 048
     Dates: start: 20070716, end: 20110727
  2. AUGMENTIN [Suspect]
     Indication: PRODUCT USED FOR UNKNOWN INDICATION
  3. VELCADE (BORTEZOMIB) [Concomitant]
  4. DEXAMETHASONE (DEXAMETHASONE) [Concomitant]
  5. FLAXSEED OIL (LINSEED OIL) [Concomitant]
  6. MAGNESIUM (MAGNESIUM) [Concomitant]
  7. NORVASC (AMLODIPINE BESILATE) [Concomitant]
  8. PERCOCET [Concomitant]
  9. POTASSIUM CHLORIDE (POTASSIUM CHLORIDE) [Concomitant]
  10. PRILOSEC (OMEPRAZOLE) [Concomitant]
  11. SYNTHROID (LEVOTHYROXINE SODIUM) [Concomitant]
  12. VITAMIN E (TOCOPHEROL) [Concomitant]

REACTIONS (3)
  - Clostridium difficile infection [None]
  - Haemophilus infection [None]
  - Treatment noncompliance [None]
